FAERS Safety Report 6833758-2 (Version None)
Quarter: 2010Q3

REPORT INFORMATION
  Report Type: 
  Country: None (occurrence: None)
  Receive Date: 20100712
  Receipt Date: 20070330
  Transmission Date: 20110219
  Serious: No
  Sender: FDA-Public Use
  Company Number: US-PFIZER INC-2007027239

PATIENT
  Sex: Female
  Weight: 61.23 kg

DRUGS (6)
  1. CHANTIX [Suspect]
     Indication: SMOKING CESSATION THERAPY
     Dates: start: 20070301
  2. TOPROL-XL [Concomitant]
     Indication: HYPERTENSION
  3. FELODIPINE [Concomitant]
     Indication: HYPERTENSION
  4. VYTORIN [Concomitant]
     Indication: BLOOD CHOLESTEROL INCREASED
  5. XALATAN [Concomitant]
     Indication: GLAUCOMA
     Route: 047
  6. COSOPT [Concomitant]
     Indication: GLAUCOMA

REACTIONS (1)
  - DIZZINESS [None]
